FAERS Safety Report 10723872 (Version 1)
Quarter: 2015Q1

REPORT INFORMATION
  Report Type: Spontaneous
  Country: US (occurrence: US)
  Receive Date: 20150120
  Receipt Date: 20150120
  Transmission Date: 20150721
  Serious: No
  Sender: FDA-Public Use
  Company Number: US-ELI_LILLY_AND_COMPANY-US201501003583

PATIENT
  Age: 61 Year
  Sex: Female

DRUGS (4)
  1. HUMULIN N [Suspect]
     Active Substance: INSULIN HUMAN
     Indication: TYPE 1 DIABETES MELLITUS
     Dosage: UNK, UNKNOWN
     Route: 065
  2. HUMALOG [Suspect]
     Active Substance: INSULIN LISPRO
     Indication: TYPE 1 DIABETES MELLITUS
     Dosage: UNK, UNKNOWN
     Route: 058
     Dates: end: 201412
  3. HUMALOG [Suspect]
     Active Substance: INSULIN LISPRO
     Indication: TYPE 1 DIABETES MELLITUS
     Dosage: 4 U, PRN
     Route: 065
     Dates: start: 20141222
  4. LANTUS [Concomitant]
     Active Substance: INSULIN GLARGINE

REACTIONS (4)
  - Incorrect dose administered [Unknown]
  - Blood glucose decreased [Unknown]
  - Infusion site scar [Unknown]
  - Impaired gastric emptying [Unknown]

NARRATIVE: CASE EVENT DATE: 20141222
